FAERS Safety Report 9285400 (Version 1)
Quarter: 2013Q2

REPORT INFORMATION
  Report Type: Spontaneous
  Country: US (occurrence: None)
  Receive Date: 20130507
  Receipt Date: 20130507
  Transmission Date: 20140414
  Serious: Yes (Hospitalization)
  Sender: FDA-Public Use
  Company Number: AUR-APL-2013-03746

PATIENT
  Age: 85 Year
  Sex: Female

DRUGS (1)
  1. ALENDRONIC ACID [Suspect]
     Indication: OSTEOPOROSIS
     Dosage: (70 MG, 1 WK), OTHER
     Route: 050

REACTIONS (1)
  - Erosive oesophagitis [None]
